FAERS Safety Report 20674944 (Version 1)
Quarter: 2022Q2

REPORT INFORMATION
  Report Type: Spontaneous
  Country: FR (occurrence: None)
  Receive Date: 20220405
  Receipt Date: 20220405
  Transmission Date: 20220721
  Serious: Yes (Hospitalization, Other)
  Sender: FDA-Public Use
  Company Number: FR-009507513-2203FRA005575

PATIENT
  Age: 79 Year
  Sex: Female

DRUGS (11)
  1. LINEZOLID [Suspect]
     Active Substance: LINEZOLID
     Indication: Staphylococcal infection
  2. LINEZOLID [Suspect]
     Active Substance: LINEZOLID
     Indication: Vascular device infection
     Dosage: UNK
     Dates: start: 202105, end: 202108
  3. DAPTOMYCIN [Suspect]
     Active Substance: DAPTOMYCIN
     Indication: Staphylococcal infection
  4. DAPTOMYCIN [Suspect]
     Active Substance: DAPTOMYCIN
     Indication: Vascular device infection
     Dosage: UNK
     Dates: start: 202105, end: 20210810
  5. TEDIZOLID PHOSPHATE [Suspect]
     Active Substance: TEDIZOLID PHOSPHATE
     Indication: Staphylococcal infection
     Dosage: A MINIMUM OF 3 MONTHS
     Dates: start: 202109
  6. TEDIZOLID PHOSPHATE [Suspect]
     Active Substance: TEDIZOLID PHOSPHATE
     Indication: Vascular device infection
  7. TEDIZOLID PHOSPHATE [Suspect]
     Active Substance: TEDIZOLID PHOSPHATE
     Indication: Sepsis
  8. CEFAZOLIN [Suspect]
     Active Substance: CEFAZOLIN
     Indication: Vascular device infection
     Dosage: UNK
  9. CEFAZOLIN [Suspect]
     Active Substance: CEFAZOLIN
     Indication: Staphylococcal infection
  10. RIFAMPIN [Concomitant]
     Active Substance: RIFAMPIN
     Indication: Staphylococcal infection
     Dosage: UNK
     Dates: start: 202105, end: 20210810
  11. RIFAMPIN [Concomitant]
     Active Substance: RIFAMPIN
     Indication: Vascular device infection

REACTIONS (10)
  - Product availability issue [Unknown]
  - Gait disturbance [Unknown]
  - Glomerular filtration rate abnormal [Unknown]
  - Fall [Unknown]
  - Adverse event [Unknown]
  - Product prescribing issue [Unknown]
  - Off label use [Unknown]
  - Drug ineffective [Unknown]
  - Pancytopenia [Unknown]
  - Blood creatinine abnormal [Unknown]

NARRATIVE: CASE EVENT DATE: 20210101
